FAERS Safety Report 11118028 (Version 3)
Quarter: 2015Q3

REPORT INFORMATION
  Report Type: Spontaneous
  Country: US (occurrence: US)
  Receive Date: 20150518
  Receipt Date: 20150810
  Transmission Date: 20151125
  Serious: Yes (Other)
  Sender: FDA-Public Use
  Company Number: US-009507513-1504USA024151

PATIENT
  Sex: Female
  Weight: 74.38 kg

DRUGS (1)
  1. NEXPLANON [Suspect]
     Active Substance: ETONOGESTREL
     Indication: CONTRACEPTION
     Dosage: 1 ROD, 3 YEARS, LEFT ARM
     Route: 059
     Dates: start: 20150113, end: 20150428

REACTIONS (5)
  - Skin necrosis [Recovered/Resolved]
  - Device expulsion [Recovered/Resolved]
  - Implant site discolouration [Recovered/Resolved]
  - Implant site irritation [Recovered/Resolved]
  - Implant site erythema [Unknown]

NARRATIVE: CASE EVENT DATE: 2015
